FAERS Safety Report 10015551 (Version 7)
Quarter: 2015Q2

REPORT INFORMATION
  Report Type: Spontaneous
  Country: US (occurrence: US)
  Receive Date: 20140317
  Receipt Date: 20150528
  Transmission Date: 20150821
  Serious: Yes (Other)
  Sender: FDA-Public Use
  Company Number: US-JNJFOC-20130308685

PATIENT

DRUGS (10)
  1. METHOTREXATE [Suspect]
     Active Substance: METHOTREXATE
     Indication: BLADDER CANCER
     Dosage: ON DAY 1
     Route: 065
  2. DOXORUBICIN [Suspect]
     Active Substance: DOXORUBICIN
     Indication: BLADDER CANCER
     Dosage: ON DAY 1
     Route: 042
  3. PEGFILGRASTIM [Suspect]
     Active Substance: PEGFILGRASTIM
     Indication: BLADDER CANCER
     Dosage: DAY 2 OR 3
     Route: 065
  4. DOXORUBICIN [Suspect]
     Active Substance: DOXORUBICIN
     Indication: TRANSITIONAL CELL CARCINOMA
     Dosage: ON DAY 1
     Route: 042
  5. VINBLASTINE [Suspect]
     Active Substance: VINBLASTINE
     Indication: BLADDER CANCER
     Dosage: ON DAY 1
     Route: 065
  6. CISPLATIN. [Suspect]
     Active Substance: CISPLATIN
     Indication: BLADDER CANCER
     Dosage: ON DAY 1
     Route: 065
  7. VINBLASTINE [Suspect]
     Active Substance: VINBLASTINE
     Indication: TRANSITIONAL CELL CARCINOMA
     Dosage: ON DAY 1
     Route: 065
  8. CISPLATIN. [Suspect]
     Active Substance: CISPLATIN
     Indication: TRANSITIONAL CELL CARCINOMA
     Dosage: ON DAY 1
     Route: 065
  9. PEGFILGRASTIM [Suspect]
     Active Substance: PEGFILGRASTIM
     Indication: TRANSITIONAL CELL CARCINOMA
     Dosage: DAY 2 OR 3
     Route: 065
  10. METHOTREXATE [Suspect]
     Active Substance: METHOTREXATE
     Indication: TRANSITIONAL CELL CARCINOMA
     Dosage: ON DAY 1
     Route: 065

REACTIONS (21)
  - Hypokalaemia [Unknown]
  - Fatigue [Unknown]
  - Vomiting [Unknown]
  - Diverticulitis [Unknown]
  - Nausea [Unknown]
  - Anaemia [Unknown]
  - Pyelonephritis [Unknown]
  - Product use issue [Unknown]
  - Lymphopenia [Unknown]
  - Hepatitis [Unknown]
  - Dehydration [Unknown]
  - Hyperkalaemia [Unknown]
  - Sepsis [Unknown]
  - Thrombocytopenia [Unknown]
  - Mucosal inflammation [Unknown]
  - Neutropenia [Unknown]
  - Acute kidney injury [Unknown]
  - Proteinuria [Unknown]
  - Pharyngitis [Unknown]
  - Hyponatraemia [Unknown]
  - Decreased appetite [Unknown]
